FAERS Safety Report 5824971-1 (Version None)
Quarter: 2008Q3

REPORT INFORMATION
  Report Type: 
  Country: None (occurrence: None)
  Receive Date: 20080728
  Receipt Date: 20080716
  Transmission Date: 20090109
  Serious: Yes (Other)
  Sender: FDA-Public Use
  Company Number: JP-PFIZER INC-2008054719

PATIENT
  Age: 32 Year
  Sex: Female

DRUGS (2)
  1. SOLANAX [Suspect]
     Indication: ANXIETY
     Dosage: DAILY DOSE:.6MG
     Route: 048
     Dates: start: 20080624, end: 20080101
  2. TRIAZOLAM [Concomitant]

REACTIONS (1)
  - ERYTHEMA MULTIFORME [None]
